FAERS Safety Report 24842760 (Version 2)
Quarter: 2025Q1

REPORT INFORMATION
  Report Type: Spontaneous
  Country: US (occurrence: US)
  Receive Date: 20250115
  Receipt Date: 20250202
  Transmission Date: 20250409
  Serious: No
  Sender: SANOFI AVENTIS
  Company Number: US-SA-2025SA009534

PATIENT
  Age: 15 Year
  Sex: Male
  Weight: 68.18 kg

DRUGS (4)
  1. DUPIXENT [Suspect]
     Active Substance: DUPILUMAB
     Indication: Gastrooesophageal reflux disease
     Dosage: 300 MG, QW
     Route: 058
  2. DUPIXENT [Suspect]
     Active Substance: DUPILUMAB
     Indication: Eosinophilic oesophagitis
  3. OMEPRAZOLE [Concomitant]
     Active Substance: OMEPRAZOLE
     Indication: Eosinophilic oesophagitis
  4. LIDOCAINE [Concomitant]
     Active Substance: LIDOCAINE
     Indication: Injection site hypoaesthesia

REACTIONS (4)
  - Oropharyngeal discomfort [Recovering/Resolving]
  - Presyncope [Recovered/Resolved]
  - Dizziness [Unknown]
  - Product use in unapproved indication [Unknown]
